FAERS Safety Report 19678464 (Version 1)
Quarter: 2021Q3

REPORT INFORMATION
  Report Type: Spontaneous
  Country: NL (occurrence: NL)
  Receive Date: 20210810
  Receipt Date: 20210810
  Transmission Date: 20211014
  Serious: Yes (Hospitalization, Other)
  Sender: FDA-Public Use
  Company Number: NL-ENDO PHARMACEUTICALS INC-2021-010710

PATIENT
  Age: 21 Year
  Sex: Male
  Weight: 128 kg

DRUGS (6)
  1. HUMAN GROWTH HORMONE, RECOMBINANT [Concomitant]
     Active Substance: SOMATROPIN
     Indication: PERFORMANCE ENHANCING PRODUCT USE
     Dosage: UNK UNKNOWN, UNKNOWN
     Route: 065
  2. TRIOSTAT [Suspect]
     Active Substance: LIOTHYRONINE SODIUM
     Dosage: UNK UNKNOWN, UNKNOWN
     Route: 065
  3. METANDIENONE [Concomitant]
     Active Substance: METHANDROSTENOLONE
     Indication: PERFORMANCE ENHANCING PRODUCT USE
     Dosage: UNK UNKNOWN, UNKNOWN
     Route: 065
  4. TRIOSTAT [Suspect]
     Active Substance: LIOTHYRONINE SODIUM
     Indication: PERFORMANCE ENHANCING PRODUCT USE
     Dosage: 50?100 ?G, DAILY
     Route: 065
  5. MASTERON [Concomitant]
     Active Substance: DROMOSTANOLONE PROPIONATE
     Indication: PERFORMANCE ENHANCING PRODUCT USE
     Dosage: UNK UNKNOWN, UNKNOWN
     Route: 065
  6. TESTOSTERONE ENANTHATE. [Concomitant]
     Active Substance: TESTOSTERONE ENANTHATE
     Indication: PERFORMANCE ENHANCING PRODUCT USE
     Dosage: UNK UNKNOWN, UNKNOWN
     Route: 065

REACTIONS (2)
  - Drug abuse [Recovered/Resolved]
  - Thyrotoxic periodic paralysis [Recovered/Resolved]
